FAERS Safety Report 19361111 (Version 1)
Quarter: 2021Q2

REPORT INFORMATION
  Report Type: Spontaneous
  Country: US (occurrence: US)
  Receive Date: 20210601
  Receipt Date: 20210601
  Transmission Date: 20210717
  Serious: No
  Sender: FDA-Public Use
  Company Number: US-TAKEDA-2021TUS033571

PATIENT
  Sex: Female

DRUGS (1)
  1. ALUNBRIG [Suspect]
     Active Substance: BRIGATINIB
     Indication: ACOUSTIC NEUROMA
     Dosage: 90 MILLIGRAM
     Route: 065
     Dates: start: 20210526

REACTIONS (2)
  - No adverse event [Unknown]
  - Off label use [Unknown]
